FAERS Safety Report 14291383 (Version 1)
Quarter: 2017Q4

REPORT INFORMATION
  Report Type: Spontaneous
  Country: US (occurrence: US)
  Receive Date: 20171215
  Receipt Date: 20171215
  Transmission Date: 20180321
  Serious: Yes (Hospitalization, Other)
  Sender: FDA-Public Use
  Company Number: US-DSJP-DSU-2017-142289

PATIENT

DRUGS (1)
  1. BENICAR [Suspect]
     Active Substance: OLMESARTAN MEDOXOMIL
     Indication: PRODUCT USED FOR UNKNOWN INDICATION
     Dosage: UNK
     Dates: end: 20140304

REACTIONS (11)
  - Haematemesis [Unknown]
  - Upper gastrointestinal haemorrhage [Recovered/Resolved]
  - Sprue-like enteropathy [Not Recovered/Not Resolved]
  - Large intestine polyp [Recovered/Resolved]
  - Irritable bowel syndrome [Unknown]
  - Duodenal ulcer [Unknown]
  - Gastrooesophageal reflux disease [Not Recovered/Not Resolved]
  - Hiatus hernia [Not Recovered/Not Resolved]
  - Haemorrhoids [Unknown]
  - Gastric ulcer [Recovering/Resolving]
  - Gastric polyps [Recovered/Resolved]

NARRATIVE: CASE EVENT DATE: 200801
